FAERS Safety Report 8176192-8 (Version None)
Quarter: 2012Q1

REPORT INFORMATION
  Report Type: 
  Country: None (occurrence: None)
  Receive Date: 20120301
  Receipt Date: 20120220
  Transmission Date: 20120608
  Serious: Yes (Hospitalization, Other)
  Sender: FDA-Public Use
  Company Number: FR-JNJFOC-20111203317

PATIENT
  Sex: Male

DRUGS (2)
  1. REMICADE [Suspect]
     Indication: COLITIS ULCERATIVE
     Route: 042
     Dates: start: 20110723
  2. CORTICOSTEROIDS [Concomitant]
     Indication: COLITIS ULCERATIVE

REACTIONS (5)
  - ABDOMINAL PAIN LOWER [None]
  - RENAL ATROPHY [None]
  - RENAL ISCHAEMIA [None]
  - COLITIS ULCERATIVE [None]
  - ARTERIAL THROMBOSIS [None]
